FAERS Safety Report 7407882-X (Version None)
Quarter: 2011Q2

REPORT INFORMATION
  Report Type: 
  Country: None (occurrence: None)
  Receive Date: 20110406
  Receipt Date: 20110406
  Transmission Date: 20111010
  Serious: Yes (Other)
  Sender: FDA-Public Use
  Company Number: None

PATIENT
  Sex: Male
  Weight: 18.5 kg

DRUGS (1)
  1. KETAMINE HCL [Suspect]
     Indication: AGITATION
     Dosage: 1-3 MG/KG/HR CONTINUOUS IV 3/18 0200- 3/25 1025
     Route: 042
     Dates: start: 20110318, end: 20110325

REACTIONS (2)
  - BLADDER DISORDER [None]
  - HAEMATURIA [None]
